FAERS Safety Report 11778170 (Version 4)
Quarter: 2016Q1

REPORT INFORMATION
  Report Type: Report from Study
  Country: IT (occurrence: IT)
  Receive Date: 20151125
  Receipt Date: 20160208
  Transmission Date: 20160525
  Serious: Yes (Death)
  Sender: FDA-Public Use
  Company Number: IT-TEVA-611859ACC

PATIENT
  Age: 71 Year
  Sex: Male

DRUGS (7)
  1. OXALIPLATINO TEVA [Suspect]
     Active Substance: OXALIPLATIN
     Indication: CHEMOTHERAPY
     Dosage: 175 MILLIGRAM DAILY;
     Route: 042
     Dates: start: 20151107, end: 20151107
  2. LONQUEX TEVA [Suspect]
     Active Substance: LIPEGFILGRASTIM
     Indication: PROPHYLAXIS
     Dosage: 6 MILLIGRAM DAILY;
     Route: 058
     Dates: start: 20151109, end: 20151109
  3. OMEPRAZOLO [Concomitant]
     Active Substance: OMEPRAZOLE
     Indication: PROPHYLAXIS
     Dosage: 20 MILLIGRAM DAILY;
     Route: 048
     Dates: start: 20151106, end: 20151112
  4. FLUCONAZOLO [Concomitant]
     Indication: PROPHYLAXIS
     Dosage: 20 MILLIGRAM DAILY;
     Route: 048
     Dates: start: 20151108, end: 20151112
  5. GEMCITABINE ACCORD [Suspect]
     Active Substance: GEMCITABINE HYDROCHLORIDE
     Indication: CHEMOTHERAPY
     Dosage: 1750 MILLIGRAM DAILY;
     Route: 042
     Dates: start: 20151107, end: 20151107
  6. PIPERACILLINA+TAZOBACTAN [Concomitant]
     Indication: FEBRILE NEUTROPENIA
     Dosage: 18 MILLIGRAM DAILY;
     Route: 042
     Dates: start: 20151111, end: 20151114
  7. MEROPENEM. [Concomitant]
     Active Substance: MEROPENEM
     Indication: SEPTIC SHOCK
     Dosage: 2 GRAM DAILY;
     Route: 042
     Dates: start: 20151115, end: 20151115

REACTIONS (1)
  - Febrile neutropenia [Fatal]

NARRATIVE: CASE EVENT DATE: 20151111
